FAERS Safety Report 9408767 (Version 1)
Quarter: 2013Q3

REPORT INFORMATION
  Report Type: Report from Study
  Country: US (occurrence: US)
  Receive Date: 20130719
  Receipt Date: 20130719
  Transmission Date: 20140515
  Serious: Yes (Hospitalization)
  Sender: FDA-Public Use
  Company Number: US-009507513-1305USA016938

PATIENT
  Age: 66 Year
  Sex: Male
  Weight: 68.9 kg

DRUGS (3)
  1. VORINOSTAT [Suspect]
     Indication: SALIVARY GLAND CANCER
     Dosage: 1200 MG ON DAYS 1-3, 400 MG ON DAYS 8-10
     Route: 048
     Dates: start: 20130513, end: 20130522
  2. VORINOSTAT [Suspect]
     Dosage: 1200 MG ON DAYS 1-3, CYCLE 2
     Route: 048
     Dates: start: 20130624, end: 20130626
  3. PACLITAXEL [Suspect]
     Indication: SALIVARY GLAND CANCER
     Dosage: 175 MG/M2 OVER 3 HRS ON DAY 3
     Route: 042
     Dates: start: 20130626, end: 20130626

REACTIONS (2)
  - Stomatitis [Recovered/Resolved]
  - Venous thrombosis [Not Recovered/Not Resolved]
